FAERS Safety Report 20908790 (Version 1)
Quarter: 2022Q2

REPORT INFORMATION
  Report Type: Spontaneous
  Country: GB (occurrence: GB)
  Receive Date: 20220603
  Receipt Date: 20220603
  Transmission Date: 20220721
  Serious: Yes (Hospitalization, Other)
  Sender: FDA-Public Use
  Company Number: GB-Shilpa Medicare Limited-SML-GB-2022-00593

PATIENT
  Age: 58 Year
  Sex: Male

DRUGS (33)
  1. IMATINIB [Suspect]
     Active Substance: IMATINIB
     Indication: Acute myeloid leukaemia
  2. IMATINIB [Suspect]
     Active Substance: IMATINIB
     Indication: Immunosuppression
  3. IMATINIB [Suspect]
     Active Substance: IMATINIB
     Indication: Bone marrow conditioning regimen
  4. MELPHALAN [Suspect]
     Active Substance: MELPHALAN
     Indication: Acute myeloid leukaemia
  5. MELPHALAN [Suspect]
     Active Substance: MELPHALAN
     Indication: Immunosuppression
  6. MELPHALAN [Suspect]
     Active Substance: MELPHALAN
     Indication: Bone marrow conditioning regimen
  7. FLUDARABINE [Suspect]
     Active Substance: FLUDARABINE PHOSPHATE
     Indication: Acute myeloid leukaemia
  8. FLUDARABINE [Suspect]
     Active Substance: FLUDARABINE PHOSPHATE
     Indication: Immunosuppression
  9. FLUDARABINE [Suspect]
     Active Substance: FLUDARABINE PHOSPHATE
     Indication: Bone marrow conditioning regimen
  10. ALEMTUZUMAB [Suspect]
     Active Substance: ALEMTUZUMAB
     Indication: Acute myeloid leukaemia
  11. ALEMTUZUMAB [Suspect]
     Active Substance: ALEMTUZUMAB
     Indication: Immunosuppression
  12. ALEMTUZUMAB [Suspect]
     Active Substance: ALEMTUZUMAB
     Indication: Bone marrow conditioning regimen
  13. CYTARABINE [Suspect]
     Active Substance: CYTARABINE
     Indication: Acute myeloid leukaemia
  14. CYTARABINE [Suspect]
     Active Substance: CYTARABINE
     Indication: Immunosuppression
  15. CYTARABINE [Suspect]
     Active Substance: CYTARABINE
     Indication: Bone marrow conditioning regimen
  16. FILGRASTIM [Suspect]
     Active Substance: FILGRASTIM
     Indication: Acute myeloid leukaemia
  17. FILGRASTIM [Suspect]
     Active Substance: FILGRASTIM
     Indication: Immunosuppression
  18. FILGRASTIM [Suspect]
     Active Substance: FILGRASTIM
     Indication: Bone marrow conditioning regimen
  19. IDARUBICIN [Suspect]
     Active Substance: IDARUBICIN
     Indication: Acute myeloid leukaemia
  20. IDARUBICIN [Suspect]
     Active Substance: IDARUBICIN
     Indication: Immunosuppression
  21. IDARUBICIN [Suspect]
     Active Substance: IDARUBICIN
     Indication: Bone marrow conditioning regimen
  22. CYCLOSPORINE [Suspect]
     Active Substance: CYCLOSPORINE
     Indication: Acute myeloid leukaemia
  23. CYCLOSPORINE [Suspect]
     Active Substance: CYCLOSPORINE
     Indication: Immunosuppression
  24. CYCLOSPORINE [Suspect]
     Active Substance: CYCLOSPORINE
     Indication: Bone marrow conditioning regimen
  25. RITUXIMAB [Suspect]
     Active Substance: RITUXIMAB
     Indication: Acute myeloid leukaemia
  26. RITUXIMAB [Suspect]
     Active Substance: RITUXIMAB
     Indication: Immunosuppression
  27. RITUXIMAB [Suspect]
     Active Substance: RITUXIMAB
     Indication: Bone marrow conditioning regimen
  28. ABATACEPT [Suspect]
     Active Substance: ABATACEPT
     Indication: Acute myeloid leukaemia
  29. ABATACEPT [Suspect]
     Active Substance: ABATACEPT
     Indication: Immunosuppression
  30. ABATACEPT [Suspect]
     Active Substance: ABATACEPT
     Indication: Bone marrow conditioning regimen
  31. TACROLIMUS [Suspect]
     Active Substance: TACROLIMUS
     Indication: Acute myeloid leukaemia
  32. TACROLIMUS [Suspect]
     Active Substance: TACROLIMUS
     Indication: Immunosuppression
  33. TACROLIMUS [Suspect]
     Active Substance: TACROLIMUS
     Indication: Bone marrow conditioning regimen

REACTIONS (7)
  - Pseudomonas infection [Unknown]
  - Disseminated varicella zoster virus infection [Unknown]
  - Fungaemia [Unknown]
  - Pneumonia fungal [Unknown]
  - Raoultella ornithinolytica infection [Unknown]
  - Cytomegalovirus infection reactivation [Unknown]
  - Chronic graft versus host disease in skin [Unknown]
